FAERS Safety Report 19892934 (Version 1)
Quarter: 2021Q3

REPORT INFORMATION
  Report Type: Report from Study
  Country: CO (occurrence: CO)
  Receive Date: 20210929
  Receipt Date: 20210929
  Transmission Date: 20211014
  Serious: Yes (Other)
  Sender: FDA-Public Use
  Company Number: CO-ASTELLAS-2018US043281

PATIENT
  Age: 1 Year
  Sex: Male

DRUGS (2)
  1. TACROLIMUS. [Suspect]
     Active Substance: TACROLIMUS
     Indication: RENAL TRANSPLANT
     Dosage: 0.6 MG, ONCE DAILY
     Route: 048
     Dates: start: 20161110
  2. TACROLIMUS. [Suspect]
     Active Substance: TACROLIMUS
     Dosage: 0.5 MG, EVERY 12 HOURS
     Route: 048
     Dates: end: 202106

REACTIONS (6)
  - Wrong technique in product usage process [Recovering/Resolving]
  - Weight increased [Unknown]
  - Off label use [Unknown]
  - Epstein-Barr viraemia [Recovering/Resolving]
  - Product prescribing error [Recovering/Resolving]
  - Secondary immunodeficiency [Recovering/Resolving]

NARRATIVE: CASE EVENT DATE: 20161110
